FAERS Safety Report 4734797-8 (Version None)
Quarter: 2005Q3

REPORT INFORMATION
  Report Type: 
  Country: None (occurrence: None)
  Receive Date: 20050804
  Receipt Date: 20050726
  Transmission Date: 20060218
  Serious: Yes (Hospitalization)
  Sender: FDA-Public Use
  Company Number: 2005UW11127

PATIENT
  Age: 28071 Day
  Sex: Female
  Weight: 60.6 kg

DRUGS (7)
  1. IRESSA [Suspect]
     Indication: OVARIAN CANCER
     Route: 048
     Dates: start: 20050622, end: 20050719
  2. TOPOTECAN [Suspect]
     Indication: OVARIAN CANCER
     Dosage: D1
     Route: 042
     Dates: start: 20050622
  3. TOPOTECAN [Suspect]
     Dosage: D8
     Route: 042
     Dates: start: 20050629
  4. TOPOTECAN [Suspect]
     Dosage: D15
     Route: 042
     Dates: start: 20050706
  5. COUMADIN [Concomitant]
     Route: 048
  6. OXYBUTYNIN [Concomitant]
     Route: 048
  7. OXYBUTYNIN [Concomitant]
     Route: 048

REACTIONS (8)
  - BLOOD GLUCOSE INCREASED [None]
  - DIARRHOEA [None]
  - HAEMATOCRIT DECREASED [None]
  - HAEMOGLOBIN DECREASED [None]
  - HYPOKALAEMIA [None]
  - HYPOMAGNESAEMIA [None]
  - INTERNATIONAL NORMALISED RATIO INCREASED [None]
  - PLATELET COUNT INCREASED [None]
